FAERS Safety Report 23068066 (Version 1)
Quarter: 2023Q4

REPORT INFORMATION
  Report Type: Report from Study
  Country: US (occurrence: US)
  Receive Date: 20231016
  Receipt Date: 20231016
  Transmission Date: 20240110
  Serious: Yes (Hospitalization)
  Sender: FDA-Public Use
  Company Number: US-MYLANLABS-2023M1105407

PATIENT

DRUGS (1)
  1. PROPRANOLOL [Suspect]
     Active Substance: PROPRANOLOL HYDROCHLORIDE
     Indication: Supraventricular tachycardia
     Dosage: 0.4 MILLIGRAM/KILOGRAM, Q6H (TOTAL DAILY DOSE 1.6 MG/KG/DAY)
     Route: 048

REACTIONS (2)
  - Hypoglycaemia neonatal [Recovered/Resolved]
  - Off label use [Unknown]
